FAERS Safety Report 6366084-9 (Version None)
Quarter: 2009Q3

REPORT INFORMATION
  Report Type: 
  Country: None (occurrence: None)
  Receive Date: 20090920
  Receipt Date: 20080911
  Transmission Date: 20100115
  Serious: No
  Sender: FDA-Public Use
  Company Number: US-BAUSCH-2008BL003948

PATIENT
  Age: 44 Year
  Sex: Male

DRUGS (3)
  1. NEOMYCIN AND POLYMXIN B SULFATES AND HYDROCORTISONE [Suspect]
     Route: 047
     Dates: start: 20080911, end: 20080911
  2. BENICAR /USA/ [Concomitant]
     Indication: HYPERTENSION
     Route: 048
  3. TRICOR [Concomitant]
     Indication: BLOOD CHOLESTEROL INCREASED
     Route: 048

REACTIONS (2)
  - EYE IRRITATION [None]
  - WRONG DRUG ADMINISTERED [None]
